FAERS Safety Report 5702703-5 (Version None)
Quarter: 2008Q2

REPORT INFORMATION
  Report Type: 
  Country: None (occurrence: None)
  Receive Date: 20080411
  Receipt Date: 20080407
  Transmission Date: 20081010
  Serious: Yes (Life-Threatening, Hospitalization, Disabling)
  Sender: FDA-Public Use
  Company Number: A0699238A

PATIENT
  Age: 53 Year
  Sex: Female
  Weight: 103.2 kg

DRUGS (13)
  1. ADVAIR HFA [Suspect]
     Indication: ASTHMA
     Dosage: 1PUFF TWICE PER DAY
     Route: 055
     Dates: start: 20020301, end: 20061201
  2. ALBUTEROL [Concomitant]
  3. PREDNISONE [Concomitant]
  4. ATROVENT [Concomitant]
     Dates: start: 20051220
  5. ALLEGRA [Concomitant]
  6. FLONASE [Concomitant]
  7. LISINOPRIL [Concomitant]
  8. HUMULIN R [Concomitant]
  9. INSULIN [Concomitant]
  10. SINGULAIR [Concomitant]
  11. GLUCOPHAGE [Concomitant]
  12. CLARITIN [Concomitant]
  13. HYDROCHLOROTHIAZIDE [Concomitant]
     Dates: start: 20050701

REACTIONS (8)
  - ASTHMA [None]
  - CHRONIC OBSTRUCTIVE PULMONARY DISEASE [None]
  - EMOTIONAL DISTRESS [None]
  - INJURY [None]
  - MENTAL DISORDER [None]
  - PAIN [None]
  - RESPIRATORY FAILURE [None]
  - STATUS ASTHMATICUS [None]
